FAERS Safety Report 23568446 (Version 3)
Quarter: 2024Q2

REPORT INFORMATION
  Report Type: Other
  Country: GB (occurrence: None)
  Receive Date: 20240227
  Receipt Date: 20240409
  Transmission Date: 20240716
  Serious: Yes (Hospitalization)
  Sender: FDA-Public Use
  Company Number: GB-ROCHE-2921124

PATIENT
  Sex: Female

DRUGS (1)
  1. TOCILIZUMAB [Suspect]
     Active Substance: TOCILIZUMAB
     Indication: Rheumatoid arthritis
     Dosage: 0.75MG/ML DOSE: 5MG (6.6ML ONCE DAILY)
     Route: 058
     Dates: start: 202107

REACTIONS (7)
  - Animal scratch [Unknown]
  - Haemorrhage [Unknown]
  - Wrong technique in product usage process [Unknown]
  - Impaired healing [Unknown]
  - Rash [Unknown]
  - Arthropathy [Recovering/Resolving]
  - Lower respiratory tract infection [Unknown]
